FAERS Safety Report 6553805-5 (Version None)
Quarter: 2010Q1

REPORT INFORMATION
  Report Type: 
  Country: None (occurrence: None)
  Receive Date: 20100125
  Receipt Date: 20100125
  Transmission Date: 20100710
  Serious: Yes (Other)
  Sender: FDA-Public Use
  Company Number: None

PATIENT
  Sex: Male
  Weight: 69.8539 kg

DRUGS (2)
  1. SIMVASTATIN [Suspect]
     Indication: BLOOD CHOLESTEROL
     Dosage: ONE TABLET IN EVENING DAILY ORAL
     Route: 048
     Dates: start: 20091001
  2. SIMVASTATIN [Suspect]
     Indication: BLOOD CHOLESTEROL
     Dosage: ONE TABLET IN EVENING DAILY ORAL
     Route: 048
     Dates: start: 20091005

REACTIONS (8)
  - ASTHENIA [None]
  - DIARRHOEA [None]
  - HYPERHIDROSIS [None]
  - MALAISE [None]
  - PRODUCT COLOUR ISSUE [None]
  - PRODUCT SIZE ISSUE [None]
  - PRODUCT SUBSTITUTION ISSUE [None]
  - VOMITING [None]
